FAERS Safety Report 6515704-4 (Version None)
Quarter: 2009Q4

REPORT INFORMATION
  Report Type: 
  Country: None (occurrence: None)
  Receive Date: 20091217
  Receipt Date: 20081202
  Transmission Date: 20100525
  Serious: No
  Sender: FDA-Public Use
  Company Number: 2008US-19722

PATIENT
  Age: 69 Year
  Sex: Female

DRUGS (1)
  1. FENOFIBRATE [Suspect]
     Indication: BLOOD CHOLESTEROL
     Dosage: 160 MG, QD, ORAL
     Route: 048
     Dates: start: 20081120, end: 20081124

REACTIONS (1)
  - VISION BLURRED [None]
